FAERS Safety Report 8998967 (Version 1)
Quarter: 2013Q1

REPORT INFORMATION
  Report Type: Spontaneous
  Country: US (occurrence: US)
  Receive Date: 20130103
  Receipt Date: 20130103
  Transmission Date: 20140127
  Serious: No
  Sender: FDA-Public Use
  Company Number: US-009507513-1212USA010054

PATIENT
  Age: 19 Year
  Sex: Female
  Weight: 49.89 kg

DRUGS (1)
  1. NUVARING [Suspect]
     Indication: CONTRACEPTION
     Dosage: UNK, QM
     Route: 067
     Dates: start: 201207

REACTIONS (2)
  - Device expulsion [Unknown]
  - Inappropriate schedule of drug administration [Unknown]
